FAERS Safety Report 8977925 (Version 1)
Quarter: 2012Q4

REPORT INFORMATION
  Report Type: 
  Country: US (occurrence: US)
  Receive Date: 20121219
  Receipt Date: 20121219
  Transmission Date: 20130627
  Serious: No
  Sender: FDA-Public Use
  Company Number: US-BAYER-2012-132856

PATIENT
  Age: 74 Year
  Sex: Male
  Weight: 86.17 kg

DRUGS (3)
  1. ALEVE CAPLET/TABLET,MIDOL EXTENDED RELIEF CAPLET [Suspect]
     Indication: ARTHRITIS
     Dosage: 1 DF, ONCE
     Route: 048
     Dates: start: 20121211, end: 20121211
  2. LIPITOR [Concomitant]
  3. OMEPRAZOLE [Concomitant]

REACTIONS (2)
  - Abdominal discomfort [Recovered/Resolved]
  - Expired drug administered [None]
